FAERS Safety Report 6833001-4 (Version None)
Quarter: 2010Q3

REPORT INFORMATION
  Report Type: 
  Country: None (occurrence: None)
  Receive Date: 20100712
  Receipt Date: 20100601
  Transmission Date: 20110219
  Serious: No
  Sender: FDA-Public Use
  Company Number: US-BIOGENIDEC-2010BI018392

PATIENT
  Age: 23 Year
  Sex: Female

DRUGS (2)
  1. AVONEX [Suspect]
     Indication: MULTIPLE SCLEROSIS
     Route: 030
     Dates: start: 20100520
  2. UNKNOWN MEDICATION [Concomitant]

REACTIONS (3)
  - CATARACT [None]
  - INFLUENZA LIKE ILLNESS [None]
  - VISION BLURRED [None]
